FAERS Safety Report 5130085-9 (Version None)
Quarter: 2006Q4

REPORT INFORMATION
  Report Type: 
  Country: None (occurrence: None)
  Receive Date: 20061012
  Receipt Date: 20060929
  Transmission Date: 20070319
  Serious: Yes (Hospitalization)
  Sender: FDA-Public Use
  Company Number: 02100-JPN-06-0468

PATIENT
  Age: 70 Year
  Sex: Female

DRUGS (5)
  1. CILOSTAZOL [Suspect]
     Indication: CEREBROVASCULAR STENOSIS
     Dosage: ONE OF 200 MG OR 75 MG ORAL
     Route: 048
     Dates: start: 20060921, end: 20060922
  2. LISINOPRIL [Concomitant]
  3. ATROVASTATIN [Concomitant]
  4. FAMOTIDINE [Concomitant]
  5. CLOPIDOGREL [Suspect]

REACTIONS (2)
  - BLOOD PRESSURE DECREASED [None]
  - ISCHAEMIC STROKE [None]
